FAERS Safety Report 10026884 (Version 2)
Quarter: 2014Q1

REPORT INFORMATION
  Report Type: Spontaneous
  Country: SI (occurrence: SI)
  Receive Date: 20140321
  Receipt Date: 20140321
  Transmission Date: 20141002
  Serious: Yes (Hospitalization)
  Sender: FDA-Public Use
  Company Number: SI-AMGEN-SVNSP2014017403

PATIENT
  Age: 59 Year
  Sex: Female
  Weight: 81 kg

DRUGS (5)
  1. ENBREL [Suspect]
     Indication: RHEUMATOID ARTHRITIS
     Dosage: 50 MG, WEEKLY
     Route: 058
     Dates: start: 20130307, end: 20130802
  2. METHOTREXAT                        /00113801/ [Concomitant]
     Dosage: 10 MG, WEEKLY
  3. CONCOR [Concomitant]
     Dosage: 1.25 MG, 1X/DAY
  4. ATORIS [Concomitant]
     Dosage: 20 MG, 1X/DAY
  5. ELDERIN [Concomitant]
     Dosage: 300 MG, 2X/DAY

REACTIONS (2)
  - Genital herpes simplex [Recovered/Resolved]
  - Pustular psoriasis [Recovering/Resolving]
